FAERS Safety Report 4367157-2 (Version None)
Quarter: 2004Q2

REPORT INFORMATION
  Report Type: 
  Country: None (occurrence: None)
  Receive Date: 20040524
  Receipt Date: 20040511
  Transmission Date: 20050107
  Serious: Yes (Death)
  Sender: FDA-Public Use
  Company Number: USA-2004-0015094

PATIENT
  Sex: Male

DRUGS (2)
  1. OXYCONTIN [Suspect]
     Dosage: 20 MG, Q12H
     Dates: start: 19990415, end: 19990701
  2. OXYCODONE HCL [Suspect]
     Dates: start: 19990415, end: 19990701

REACTIONS (1)
  - DEATH [None]
